FAERS Safety Report 6090758-0 (Version None)
Quarter: 2009Q1

REPORT INFORMATION
  Report Type: 
  Country: None (occurrence: None)
  Receive Date: 20090224
  Receipt Date: 20090130
  Transmission Date: 20090719
  Serious: No
  Sender: FDA-Public Use
  Company Number: US-ABBOTT-09P-163-0501311-00

PATIENT
  Sex: Male
  Weight: 74.91 kg

DRUGS (5)
  1. SIMCOR [Suspect]
     Indication: BLOOD CHOLESTEROL INCREASED
     Dosage: 500/20MG
     Route: 048
     Dates: start: 20090120
  2. PROCRIT [Concomitant]
     Indication: RENAL DISORDER
     Dosage: UNKNOWN
     Route: 058
  3. VESICARE [Concomitant]
     Indication: POST PROCEDURAL URINE LEAK
     Dosage: UNKNOWN
  4. ASPIRIN [Concomitant]
     Indication: PROPHYLAXIS
     Dates: start: 20090120
  5. ASPIRIN [Concomitant]
     Indication: ADVERSE DRUG REACTION

REACTIONS (2)
  - FEELING HOT [None]
  - FLUSHING [None]
